FAERS Safety Report 8098220-0 (Version None)
Quarter: 2012Q1

REPORT INFORMATION
  Report Type: 
  Country: None (occurrence: None)
  Receive Date: 20120128
  Receipt Date: 20110714
  Transmission Date: 20120608
  Serious: No
  Sender: FDA-Public Use
  Company Number: US-ABBOTT-11P-163-0840138-00

PATIENT
  Age: 31 Year
  Sex: Female

DRUGS (3)
  1. TOPICORT [Concomitant]
     Indication: PRODUCT USED FOR UNKNOWN INDICATION
  2. HUMIRA [Suspect]
     Route: 058
     Dates: start: 20110301
  3. HUMIRA [Suspect]
     Indication: PSORIASIS
     Route: 058
     Dates: start: 20110301

REACTIONS (1)
  - DRUG INEFFECTIVE [None]
